FAERS Safety Report 5633856-5 (Version None)
Quarter: 2008Q1

REPORT INFORMATION
  Report Type: 
  Country: None (occurrence: None)
  Receive Date: 20080219
  Receipt Date: 20080204
  Transmission Date: 20080703
  Serious: Yes (Hospitalization)
  Sender: FDA-Public Use
  Company Number: ADE2008-0121

PATIENT
  Age: 64 Year
  Sex: Male

DRUGS (7)
  1. SIMVASTATIN [Suspect]
     Indication: CARDIOVASCULAR EVENT PROPHYLAXIS
     Dosage: 40MG PO
     Route: 048
     Dates: start: 20040927
  2. ASCORBIC ACID [Concomitant]
  3. ASPIRIN [Concomitant]
  4. CLOPIDOGREL [Concomitant]
  5. GLUCOSAMINE [Concomitant]
  6. OMEGA-3 MARINE TRIGLYCERIDES [Concomitant]
  7. UNSPECIFIED VITAMINS [Concomitant]

REACTIONS (5)
  - CHEST PAIN [None]
  - CONDITION AGGRAVATED [None]
  - HYPERTENSION [None]
  - MYOCARDIAL INFARCTION [None]
  - OSTEOARTHRITIS [None]
